FAERS Safety Report 23401271 (Version 8)
Quarter: 2025Q2

REPORT INFORMATION
  Report Type: Spontaneous
  Country: FI (occurrence: FI)
  Receive Date: 20240115
  Receipt Date: 20250519
  Transmission Date: 20250716
  Serious: Yes (Life-Threatening, Hospitalization, Other)
  Sender: NOVARTIS
  Company Number: FI-002147023-NVSC2023FI245531

PATIENT
  Age: 46 Year
  Sex: Male

DRUGS (1)
  1. GILENYA [Suspect]
     Active Substance: FINGOLIMOD HYDROCHLORIDE
     Indication: Multiple sclerosis
     Dosage: 0.5 MG, QD
     Route: 048
     Dates: start: 20180619, end: 20231102

REACTIONS (17)
  - Cryptococcal meningoencephalitis [Recovered/Resolved]
  - Hallucination, visual [Recovered/Resolved]
  - Headache [Recovered/Resolved]
  - Central nervous system infection [Unknown]
  - Disease progression [Unknown]
  - Infection [Recovering/Resolving]
  - Lymphocyte count decreased [Recovered/Resolved]
  - Cryptococcal fungaemia [Recovering/Resolving]
  - Cryptococcal meningoencephalitis [Recovered/Resolved]
  - Immune reconstitution inflammatory syndrome [Not Recovered/Not Resolved]
  - Brain injury [Not Recovered/Not Resolved]
  - Cryptococcal meningoencephalitis [Unknown]
  - Photophobia [Recovered/Resolved]
  - CD4 lymphocytes decreased [Recovered/Resolved]
  - Meningeal disorder [Not Recovered/Not Resolved]
  - Lymphopenia [Unknown]
  - Lymphocyte count decreased [Recovered/Resolved]

NARRATIVE: CASE EVENT DATE: 20180701
